FAERS Safety Report 23433517 (Version 2)
Quarter: 2024Q1

REPORT INFORMATION
  Report Type: Spontaneous
  Country: US (occurrence: US)
  Receive Date: 20240123
  Receipt Date: 20240311
  Transmission Date: 20240410
  Serious: No
  Sender: FDA-Public Use
  Company Number: US-PFIZER INC-202400020224

PATIENT
  Age: 77 Year
  Sex: Male
  Weight: 124.72 kg

DRUGS (2)
  1. INLYTA [Suspect]
     Active Substance: AXITINIB
     Indication: Renal cancer
     Dosage: EVERY 12 HOURS
     Route: 048
     Dates: start: 20240104, end: 20240215
  2. KEYTRUDA [Concomitant]
     Active Substance: PEMBROLIZUMAB
     Dosage: UNK
     Dates: start: 20240104

REACTIONS (3)
  - Joint stiffness [Not Recovered/Not Resolved]
  - Somnolence [Unknown]
  - Movement disorder [Not Recovered/Not Resolved]

NARRATIVE: CASE EVENT DATE: 20240101
